FAERS Safety Report 4827079-7 (Version None)
Quarter: 2005Q4

REPORT INFORMATION
  Report Type: 
  Country: None (occurrence: None)
  Receive Date: 20051114
  Receipt Date: 20000926
  Transmission Date: 20060501
  Serious: Yes (Life-Threatening, Hospitalization, Other)
  Sender: FDA-Public Use
  Company Number: US-GLAXOSMITHKLINE-A0128810A

PATIENT
  Age: 57 Year
  Sex: Female

DRUGS (7)
  1. LOTRONEX [Suspect]
     Indication: IRRITABLE BOWEL SYNDROME
     Dosage: 1MG TWICE PER DAY
     Route: 048
     Dates: start: 20000701, end: 20000830
  2. ZYRTEC [Concomitant]
     Dosage: 10MG PER DAY
  3. VIOXX [Concomitant]
     Dosage: 12.5MG PER DAY
  4. DICYCLOMINE [Concomitant]
     Dosage: 10MG THREE TIMES PER DAY
     Dates: start: 20000829
  5. SYNTHROID [Concomitant]
     Indication: HYPOTHYROIDISM
  6. XANAX [Concomitant]
  7. HERBS [Concomitant]
     Dates: start: 20000811

REACTIONS (13)
  - ABDOMINAL PAIN [None]
  - COLECTOMY [None]
  - CONSTIPATION [None]
  - DIARRHOEA [None]
  - GASTROINTESTINAL DISORDER [None]
  - GASTROINTESTINAL NECROSIS [None]
  - ILEOSTOMY [None]
  - LARGE INTESTINAL ULCER [None]
  - LARGE INTESTINE PERFORATION [None]
  - MEGACOLON [None]
  - PERITONEAL EFFUSION [None]
  - PYREXIA [None]
  - VULVOVAGINITIS [None]
